FAERS Safety Report 14295351 (Version 1)
Quarter: 2017Q4

REPORT INFORMATION
  Report Type: Spontaneous
  Country: US (occurrence: US)
  Receive Date: 20171218
  Receipt Date: 20171218
  Transmission Date: 20180321
  Serious: No
  Sender: FDA-Public Use
  Company Number: US-PFIZER INC-2017534173

PATIENT
  Sex: Female

DRUGS (1)
  1. PRISTIQ EXTENDED-RELEASE [Suspect]
     Active Substance: DESVENLAFAXINE SUCCINATE
     Dosage: UNK
     Dates: start: 20170815

REACTIONS (4)
  - Tremor [Unknown]
  - Withdrawal syndrome [Unknown]
  - Insomnia [Unknown]
  - Bacterial infection [Unknown]

NARRATIVE: CASE EVENT DATE: 2017
